FAERS Safety Report 19501012 (Version 1)
Quarter: 2021Q3

REPORT INFORMATION
  Report Type: Spontaneous
  Country: US (occurrence: US)
  Receive Date: 20210706
  Receipt Date: 20210706
  Transmission Date: 20211014
  Serious: No
  Sender: FDA-Public Use
  Company Number: None

PATIENT
  Age: 65 Year
  Sex: Male

DRUGS (12)
  1. CABOMETYX [Suspect]
     Active Substance: CABOZANTINIB S-MALATE
     Indication: RENAL CANCER
     Route: 048
     Dates: start: 20200908
  2. XARELTO [Concomitant]
     Active Substance: RIVAROXABAN
     Dates: start: 20210413
  3. BENAZEPRIL 20MG [Concomitant]
     Dates: start: 20210413
  4. ALBUTEROL MDI [Concomitant]
     Active Substance: ALBUTEROL
     Dates: start: 20210413
  5. POTASSIUM CHLORIDE 20MEQ [Concomitant]
     Active Substance: POTASSIUM CHLORIDE
     Dates: start: 20210413
  6. FREESTYLE [Concomitant]
     Dates: start: 20200616
  7. CARVEDILOL 12.5MG [Concomitant]
     Active Substance: CARVEDILOL
     Dates: start: 20210413
  8. METFORMIN 500MG [Concomitant]
     Active Substance: METFORMIN HYDROCHLORIDE
     Dates: start: 20210413
  9. EZETIMIBE 10MG [Concomitant]
     Active Substance: EZETIMIBE
     Dates: start: 20210413
  10. MIRTAZAPINE 30MG [Concomitant]
     Active Substance: MIRTAZAPINE
     Dates: start: 20210413
  11. ATORVASTATIN 10MG [Concomitant]
     Active Substance: ATORVASTATIN
     Dates: start: 20210413
  12. OMEPRAZOLE 20MG [Concomitant]
     Active Substance: OMEPRAZOLE
     Dates: start: 20210413

REACTIONS (2)
  - Fatigue [None]
  - Diarrhoea [None]

NARRATIVE: CASE EVENT DATE: 20210706
